FAERS Safety Report 15801878 (Version 2)
Quarter: 2019Q1

REPORT INFORMATION
  Report Type: Spontaneous
  Country: CH (occurrence: CH)
  Receive Date: 20190109
  Receipt Date: 20190322
  Transmission Date: 20190417
  Serious: Yes (Other)
  Sender: FDA-Public Use
  Company Number: CH-BAYER-2019-006076

PATIENT
  Age: 31 Year
  Sex: Female

DRUGS (1)
  1. MIRENA [Suspect]
     Active Substance: LEVONORGESTREL
     Indication: AMENORRHOEA
     Dosage: 20 MCG/24HR, CONT
     Route: 015
     Dates: start: 20180620

REACTIONS (9)
  - Asthenia [Recovering/Resolving]
  - Drug effective for unapproved indication [None]
  - Adjustment disorder with depressed mood [Recovering/Resolving]
  - Suicidal ideation [Recovering/Resolving]
  - Crying [Recovering/Resolving]
  - Off label use of device [None]
  - Loss of libido [Recovering/Resolving]
  - Amenorrhoea [None]
  - Device use issue [None]

NARRATIVE: CASE EVENT DATE: 201810
